FAERS Safety Report 21075388 (Version 2)
Quarter: 2022Q4

REPORT INFORMATION
  Report Type: Report from Study
  Country: US (occurrence: US)
  Receive Date: 20220713
  Receipt Date: 20221121
  Transmission Date: 20230112
  Serious: No
  Sender: FDA-Public Use
  Company Number: US-NOVARTISTESTPH-NVSC2022US158877

PATIENT
  Sex: Female
  Weight: 77.098 kg

DRUGS (2)
  1. TREPROSTINIL [Suspect]
     Active Substance: TREPROSTINIL
     Indication: Pulmonary arterial hypertension
     Dosage: 63 NG/KG/MIN, CONT
     Route: 058
     Dates: start: 20220113
  2. TREPROSTINIL [Suspect]
     Active Substance: TREPROSTINIL
     Dosage: 63 NG/KG/MIN, CONT
     Route: 058

REACTIONS (2)
  - Infusion site haemorrhage [Unknown]
  - Infusion site reaction [Unknown]
